FAERS Safety Report 9270375 (Version 2)
Quarter: 2013Q3

REPORT INFORMATION
  Report Type: Spontaneous
  Country: BR (occurrence: BR)
  Receive Date: 20130503
  Receipt Date: 20130718
  Transmission Date: 20140515
  Serious: Yes (Other)
  Sender: FDA-Public Use
  Company Number: BR-BAXTER-2013BAX015521

PATIENT
  Age: 44 Year
  Sex: Male

DRUGS (1)
  1. ENDOBULIN KIOVIG [Suspect]
     Indication: PRODUCT USED FOR UNKNOWN INDICATION
     Route: 042
     Dates: start: 20130419, end: 20130419

REACTIONS (3)
  - Tremor [Recovered/Resolved]
  - Flushing [Recovered/Resolved]
  - Bone pain [Recovered/Resolved]
